FAERS Safety Report 12286142 (Version 2)
Quarter: 2016Q2

REPORT INFORMATION
  Report Type: Spontaneous
  Country: CN (occurrence: CN)
  Receive Date: 20160420
  Receipt Date: 20160428
  Transmission Date: 20160815
  Serious: Yes (Hospitalization, Other)
  Sender: FDA-Public Use
  Company Number: CN-PFIZER INC-2016219912

PATIENT
  Age: 72 Year
  Sex: Male

DRUGS (3)
  1. CORDARONE [Suspect]
     Active Substance: AMIODARONE HYDROCHLORIDE
     Dosage: 1 DF, DAILY
     Route: 048
     Dates: end: 20151112
  2. CORDARONE [Suspect]
     Active Substance: AMIODARONE HYDROCHLORIDE
     Indication: ATRIAL FIBRILLATION
     Dosage: 1 DF, 3X/DAY
     Route: 048
     Dates: start: 20031101
  3. CORDARONE [Suspect]
     Active Substance: AMIODARONE HYDROCHLORIDE
     Dosage: 1 DF, 2X/DAY
     Route: 048

REACTIONS (5)
  - Sinus bradycardia [Recovering/Resolving]
  - Cerebral atrophy [Unknown]
  - Leukoencephalopathy [Unknown]
  - Syncope [Recovering/Resolving]
  - Atrioventricular block first degree [Unknown]

NARRATIVE: CASE EVENT DATE: 20151112
